FAERS Safety Report 8511401-4 (Version None)
Quarter: 2012Q3

REPORT INFORMATION
  Report Type: 
  Country: None (occurrence: None)
  Receive Date: 20120716
  Receipt Date: 20120702
  Transmission Date: 20120928
  Serious: Yes (Hospitalization)
  Sender: FDA-Public Use
  Company Number: US-SANOFI-AVENTIS-2012SA047148

PATIENT
  Age: 56 Year
  Sex: Female

DRUGS (5)
  1. EFFIENT [Concomitant]
     Dates: start: 20120601, end: 20120702
  2. PLAVIX [Suspect]
     Route: 048
     Dates: start: 20120702
  3. PLAVIX [Suspect]
     Indication: STENT PLACEMENT
     Dates: start: 20120627
  4. PLAVIX [Suspect]
     Indication: CHEST PAIN
     Dates: start: 20120627
  5. PLAVIX [Suspect]
     Route: 048
     Dates: start: 20120702

REACTIONS (3)
  - CHEST PAIN [None]
  - RASH [None]
  - URTICARIA [None]
